FAERS Safety Report 4636506-X (Version None)
Quarter: 2005Q2

REPORT INFORMATION
  Report Type: 
  Country: None (occurrence: None)
  Receive Date: 20050415
  Receipt Date: 20050406
  Transmission Date: 20051028
  Serious: Yes (Other)
  Sender: FDA-Public Use
  Company Number: AU-BRISTOL-MYERS SQUIBB COMPANY-12922647

PATIENT
  Sex: Male

DRUGS (3)
  1. REYATAZ [Suspect]
     Dosage: DOSE INCREASED BEFORE ADVERSE EVENT FROM 400 MG DAILY TO 600 MG DAILY DUE TO LOW BLOOD LEVELS.
     Dates: start: 20040301
  2. ZERIT [Suspect]
  3. LAMIVUDINE [Concomitant]

REACTIONS (2)
  - HYPERBILIRUBINAEMIA [None]
  - JAUNDICE [None]
